FAERS Safety Report 25698721 (Version 1)
Quarter: 2025Q3

REPORT INFORMATION
  Report Type: Other
  Country: GB (occurrence: GB)
  Receive Date: 20250819
  Receipt Date: 20250819
  Transmission Date: 20251021
  Serious: Yes (Other)
  Sender: STRIDES
  Company Number: None

PATIENT
  Age: 69 Year
  Sex: Male
  Weight: 86 kg

DRUGS (1)
  1. COLCHICINE [Suspect]
     Active Substance: COLCHICINE
     Indication: Gout
     Route: 065
     Dates: start: 20250718

REACTIONS (1)
  - Blood urine present [Not Recovered/Not Resolved]

NARRATIVE: CASE EVENT DATE: 20250722
